FAERS Safety Report 25096796 (Version 1)
Quarter: 2025Q1

REPORT INFORMATION
  Report Type: Spontaneous
  Country: IT (occurrence: IT)
  Receive Date: 20250319
  Receipt Date: 20250319
  Transmission Date: 20250409
  Serious: Yes (Other)
  Sender: B BRAUN
  Company Number: IT-B.Braun Medical Inc.-2173184

PATIENT
  Age: 30 Day
  Sex: Male
  Weight: 2 kg

DRUGS (1)
  1. ACETAMINOPHEN [Suspect]
     Active Substance: ACETAMINOPHEN
     Indication: Pain
     Dates: start: 20250131

REACTIONS (1)
  - Psychomotor hyperactivity [Recovered/Resolved]
